FAERS Safety Report 4717748-1 (Version None)
Quarter: 2005Q3

REPORT INFORMATION
  Report Type: 
  Country: None (occurrence: None)
  Receive Date: 20050715
  Receipt Date: 20040608
  Transmission Date: 20060218
  Serious: Yes (Life-Threatening)
  Sender: FDA-Public Use
  Company Number: 2004-BP-04461RO

PATIENT
  Age: 1 Year
  Sex: Male

DRUGS (1)
  1. PROPRANOLOL HYDROCHLORIDE [Suspect]
     Dosage: 6 MG (1.5 ML) TID (SEE TEXT), PO
     Route: 048

REACTIONS (1)
  - BLOOD GLUCOSE DECREASED [None]
